FAERS Safety Report 18400767 (Version 2)
Quarter: 2020Q4

REPORT INFORMATION
  Report Type: Report from Study
  Country: US (occurrence: US)
  Receive Date: 20201019
  Receipt Date: 20201028
  Transmission Date: 20210114
  Serious: No
  Sender: FDA-Public Use
  Company Number: US-SA-2020SA292629

PATIENT

DRUGS (5)
  1. MELOXICAM. [Concomitant]
     Active Substance: MELOXICAM
  2. VITAMIN D3 [Concomitant]
     Active Substance: CHOLECALCIFEROL
  3. TERIFLUNOMIDE. [Suspect]
     Active Substance: TERIFLUNOMIDE
     Indication: MULTIPLE SCLEROSIS
     Dosage: 14 MG, QD
     Route: 048
     Dates: start: 20200508
  4. TYLENOL [Concomitant]
     Active Substance: ACETAMINOPHEN
  5. ZYRTEC [Concomitant]
     Active Substance: CETIRIZINE HYDROCHLORIDE

REACTIONS (2)
  - Urinary tract infection [Unknown]
  - Unevaluable event [Unknown]

NARRATIVE: CASE EVENT DATE: 2020
